FAERS Safety Report 4874707-6 (Version None)
Quarter: 2006Q1

REPORT INFORMATION
  Report Type: 
  Country: None (occurrence: None)
  Receive Date: 20060106
  Receipt Date: 20050926
  Transmission Date: 20060701
  Serious: Yes (Hospitalization, Other)
  Sender: FDA-Public Use
  Company Number: US-MERCK-0509USA03754

PATIENT
  Age: 79 Year
  Sex: Female

DRUGS (6)
  1. VIOXX [Suspect]
     Route: 048
     Dates: end: 20020301
  2. MEVACOR [Concomitant]
     Route: 048
  3. LASIX [Concomitant]
     Route: 065
  4. ZESTRIL [Concomitant]
     Route: 065
  5. ALLOPURINOL [Concomitant]
     Route: 065
  6. CARDURA [Concomitant]
     Route: 065

REACTIONS (15)
  - BLOOD CALCIUM DECREASED [None]
  - CARDIAC DISORDER [None]
  - DEHYDRATION [None]
  - DIFFICULTY IN WALKING [None]
  - DRUG HYPERSENSITIVITY [None]
  - DYSPNOEA [None]
  - FACIAL BONES FRACTURE [None]
  - FALL [None]
  - FATIGUE [None]
  - FUNGAL INFECTION [None]
  - GOITRE [None]
  - HYPERLIPIDAEMIA [None]
  - NAUSEA [None]
  - SUBMANDIBULAR MASS [None]
  - THYROIDITIS [None]
